FAERS Safety Report 7058014-1 (Version None)
Quarter: 2010Q4

REPORT INFORMATION
  Report Type: 
  Country: None (occurrence: None)
  Receive Date: 20101022
  Receipt Date: 20101015
  Transmission Date: 20110411
  Serious: Yes (Other)
  Sender: FDA-Public Use
  Company Number: PHHY2010US48058

PATIENT
  Sex: Male

DRUGS (4)
  1. EXTAVIA [Suspect]
     Indication: MULTIPLE SCLEROSIS
     Dosage: 0.25 MG, QOD
     Route: 058
     Dates: start: 20100423
  2. EXTAVIA [Suspect]
     Dosage: UNK, TIW
     Route: 058
  3. GAMMAGARD [Concomitant]
     Dosage: ONCE AMONTH
  4. IMMU-G [Concomitant]
     Dosage: UNK, EVERY ONE MONTH
     Route: 042

REACTIONS (7)
  - CENTRAL NERVOUS SYSTEM LESION [None]
  - INFLUENZA LIKE ILLNESS [None]
  - INTRACRANIAL ANEURYSM [None]
  - MULTIPLE SCLEROSIS RELAPSE [None]
  - PARAESTHESIA [None]
  - SWELLING FACE [None]
  - TREMOR [None]
